FAERS Safety Report 19974066 (Version 1)
Quarter: 2021Q4

REPORT INFORMATION
  Report Type: Spontaneous
  Country: AT (occurrence: AT)
  Receive Date: 20211020
  Receipt Date: 20211020
  Transmission Date: 20220303
  Serious: Yes (Other)
  Sender: FDA-Public Use
  Company Number: AT-NOVARTISPH-NVSC2021AT235064

PATIENT

DRUGS (5)
  1. LAMOTRIGINE [Interacting]
     Active Substance: LAMOTRIGINE
     Indication: Epilepsy
     Dosage: UNK
     Route: 065
  2. VIMPAT [Interacting]
     Active Substance: LACOSAMIDE
     Indication: Epilepsy
     Dosage: 400 MG
     Route: 065
  3. KEPPRA [Interacting]
     Active Substance: LEVETIRACETAM
     Indication: Epilepsy
     Dosage: 3000 MG
     Route: 065
  4. FYCOMPA [Concomitant]
     Active Substance: PERAMPANEL
     Indication: Product used for unknown indication
     Dosage: UNK
     Route: 065
  5. CLOBAZAM [Concomitant]
     Active Substance: CLOBAZAM
     Indication: Seizure
     Dosage: UNK
     Route: 065

REACTIONS (3)
  - Seizure [Unknown]
  - Hyponatraemia [Unknown]
  - Drug interaction [Unknown]
